FAERS Safety Report 19822734 (Version 1)
Quarter: 2021Q3

REPORT INFORMATION
  Report Type: Report from Study
  Country: US (occurrence: US)
  Receive Date: 20210913
  Receipt Date: 20210913
  Transmission Date: 20211014
  Serious: No
  Sender: FDA-Public Use
  Company Number: NVSC2021US205485

PATIENT
  Sex: Female

DRUGS (1)
  1. TASIGNA [Suspect]
     Active Substance: NILOTINIB
     Indication: PRODUCT USED FOR UNKNOWN INDICATION
     Route: 048

REACTIONS (7)
  - Musculoskeletal discomfort [Unknown]
  - Muscle tightness [Unknown]
  - Arthralgia [Unknown]
  - Headache [Unknown]
  - Blood glucose increased [Unknown]
  - Neck pain [Unknown]
  - Abdominal pain upper [Unknown]
